FAERS Safety Report 7319739-3 (Version None)
Quarter: 2011Q1

REPORT INFORMATION
  Report Type: 
  Country: None (occurrence: None)
  Receive Date: 20110228
  Receipt Date: 20100831
  Transmission Date: 20110831
  Serious: No
  Sender: FDA-Public Use
  Company Number: A0878673A

PATIENT
  Age: 42 Year
  Sex: Female

DRUGS (2)
  1. LAMICTAL [Suspect]
     Dosage: 200MG PER DAY
     Route: 048
     Dates: start: 20070101
  2. FLUVOXAMINE MALEATE [Concomitant]

REACTIONS (4)
  - RASH [None]
  - BLISTER [None]
  - PRURITUS [None]
  - RASH PAPULAR [None]
